FAERS Safety Report 8470542-0 (Version None)
Quarter: 2012Q2

REPORT INFORMATION
  Report Type: 
  Country: None (occurrence: None)
  Receive Date: 20120627
  Receipt Date: 20120619
  Transmission Date: 20120825
  Serious: Yes (Hospitalization, Other)
  Sender: FDA-Public Use
  Company Number: PHHY2012ES017362

PATIENT
  Age: 25 Year
  Sex: Female

DRUGS (2)
  1. GILENYA [Suspect]
     Dosage: 0.5 MG, UNK
     Route: 048
  2. GILENYA [Suspect]
     Indication: MULTIPLE SCLEROSIS
     Dosage: 0.5 MG, BID
     Route: 048
     Dates: start: 20111225

REACTIONS (4)
  - MULTIPLE SCLEROSIS RELAPSE [None]
  - LYMPHOPENIA [None]
  - CENTRAL NERVOUS SYSTEM LESION [None]
  - OVERDOSE [None]
